FAERS Safety Report 5264190-3 (Version None)
Quarter: 2007Q1

REPORT INFORMATION
  Report Type: 
  Country: None (occurrence: None)
  Receive Date: 20070313
  Receipt Date: 20070308
  Transmission Date: 20070707
  Serious: Yes (Life-Threatening)
  Sender: FDA-Public Use
  Company Number: US-BOEHRINGER INGELHEIM PHARMACEUTICALS, INC.-2007-DE-01439GD

PATIENT
  Age: 15 Year
  Sex: Female

DRUGS (7)
  1. IPRATROPIUM BROMIDE [Suspect]
     Indication: STATUS ASTHMATICUS
     Route: 055
  2. ISOPROTERENOL [Suspect]
     Indication: STATUS ASTHMATICUS
     Route: 055
  3. ALBUTEROL [Suspect]
     Indication: STATUS ASTHMATICUS
     Dosage: MAX. 25 MG/H
     Route: 055
  4. TERBUTALINE SULFATE [Suspect]
     Indication: STATUS ASTHMATICUS
     Dosage: MAX. 4 MCG/KG/MIN
     Route: 042
  5. MAGNESIUM SULFATE [Suspect]
     Indication: STATUS ASTHMATICUS
     Route: 042
  6. METHYLPREDNISOLONE 16MG TAB [Suspect]
     Indication: STATUS ASTHMATICUS
     Dosage: MAX. 4 MG/KG
     Route: 042
  7. EPINEPHRINE [Suspect]
     Indication: STATUS ASTHMATICUS

REACTIONS (2)
  - CONDITION AGGRAVATED [None]
  - DRUG INEFFECTIVE [None]
